FAERS Safety Report 6037679-7 (Version None)
Quarter: 2009Q1

REPORT INFORMATION
  Report Type: 
  Country: None (occurrence: None)
  Receive Date: 20090114
  Receipt Date: 20090102
  Transmission Date: 20090719
  Serious: Yes (Other)
  Sender: FDA-Public Use
  Company Number: NL-PFIZER INC-2009151232

PATIENT

DRUGS (1)
  1. VORICONAZOLE [Suspect]
     Indication: OSTEOMYELITIS FUNGAL
     Dosage: 4 MG/KG, 2X/DAY
     Route: 042

REACTIONS (1)
  - DRUG RESISTANCE [None]
